FAERS Safety Report 8792089 (Version 1)
Quarter: 2012Q4

REPORT INFORMATION
  Report Type: 
  Country: IT (occurrence: IT)
  Receive Date: 20120918
  Receipt Date: 20120918
  Transmission Date: 20130627
  Serious: Yes (Other)
  Sender: FDA-Public Use
  Company Number: IT-PFIZER INC-2009283427

PATIENT
  Age: 47 Year
  Sex: Female

DRUGS (1)
  1. SUTENT [Suspect]
     Indication: RENAL CELL CARCINOMA
     Dosage: 25 mg, 1x/day
     Route: 048
     Dates: start: 20090304, end: 20090804

REACTIONS (2)
  - Acute myocardial infarction [Recovered/Resolved]
  - Hypertension [Recovering/Resolving]
